FAERS Safety Report 23214966 (Version 1)
Quarter: 2023Q4

REPORT INFORMATION
  Report Type: Spontaneous
  Country: FR (occurrence: FR)
  Receive Date: 20231122
  Receipt Date: 20231122
  Transmission Date: 20240110
  Serious: Yes (Other)
  Sender: FDA-Public Use
  Company Number: FR-TILLOMEDPR-2023-EPL-005901

PATIENT
  Age: 7 Year
  Sex: Female

DRUGS (7)
  1. CARBOPLATIN [Suspect]
     Active Substance: CARBOPLATIN
     Indication: Retinoblastoma
     Dosage: 2 CYCLES
     Route: 065
  2. VINCRISTINE [Suspect]
     Active Substance: VINCRISTINE
     Indication: Prophylaxis
     Dosage: UNK (2)
     Route: 042
  3. CYCLOPHOSPHAMIDE [Suspect]
     Active Substance: CYCLOPHOSPHAMIDE
     Indication: Prophylaxis
     Dosage: UNK (2)
     Route: 042
  4. CARBOPLATIN [Suspect]
     Active Substance: CARBOPLATIN
     Indication: Retinoblastoma
     Dosage: 2 CYCLES
     Route: 065
  5. MELPHALAN [Suspect]
     Active Substance: MELPHALAN
     Indication: Retinoblastoma
     Dosage: (0.3 MG/ML; 0.06 MG) (TOTAL 9 IVITC OF MELPHALAN)
     Route: 065
  6. MELPHALAN [Suspect]
     Active Substance: MELPHALAN
     Dosage: 5 MILLIGRAM (5 MILLIGRAM, 1 DOSE PER 4M (5 MG, 4 MONTHLY INJECTIONS))
     Route: 065
  7. ETOPOSIDE [Suspect]
     Active Substance: ETOPOSIDE

REACTIONS (3)
  - Cataract [Recovered/Resolved]
  - Iris atrophy [Recovered/Resolved]
  - Off label use [Unknown]
